FAERS Safety Report 7551745-6 (Version None)
Quarter: 2011Q2

REPORT INFORMATION
  Report Type: 
  Country: None (occurrence: None)
  Receive Date: 20110616
  Receipt Date: 20101117
  Transmission Date: 20111010
  Serious: Yes (Hospitalization)
  Sender: FDA-Public Use
  Company Number: A0896747A

PATIENT
  Age: 47 Year
  Sex: Male

DRUGS (2)
  1. AVANDIA [Suspect]
     Route: 048
     Dates: start: 20010201
  2. AVANDAMET [Suspect]
     Route: 048
     Dates: start: 20010201

REACTIONS (3)
  - CORONARY ARTERY BYPASS [None]
  - MYOCARDIAL INFARCTION [None]
  - HYPOAESTHESIA [None]
